FAERS Safety Report 8488983-4 (Version None)
Quarter: 2012Q3

REPORT INFORMATION
  Report Type: 
  Country: None (occurrence: None)
  Receive Date: 20120705
  Receipt Date: 20120703
  Transmission Date: 20120928
  Serious: No
  Sender: FDA-Public Use
  Company Number: US-PFIZER INC-2012159902

PATIENT
  Sex: Female

DRUGS (2)
  1. FLECTOR [Suspect]
     Indication: MUSCLE SPASMS
     Dosage: UNK
     Route: 062
     Dates: start: 20120702
  2. VERAPAMIL HCL [Suspect]
     Indication: HYPERTENSION
     Dosage: 180 MG, DAILY

REACTIONS (2)
  - DRUG INEFFECTIVE [None]
  - BLOOD PRESSURE INCREASED [None]
